FAERS Safety Report 12574147 (Version 1)
Quarter: 2016Q3

REPORT INFORMATION
  Report Type: Spontaneous
  Country: US (occurrence: US)
  Receive Date: 20160720
  Receipt Date: 20160720
  Transmission Date: 20161109
  Serious: No
  Sender: FDA-Public Use
  Company Number: US-TEVA-670454USA

PATIENT
  Age: 56 Year
  Sex: Male

DRUGS (2)
  1. ZECUITY [Suspect]
     Active Substance: SUMATRIPTAN SUCCINATE
     Route: 062
     Dates: start: 20160607, end: 20160607
  2. ZECUITY [Suspect]
     Active Substance: SUMATRIPTAN SUCCINATE
     Indication: MIGRAINE
     Route: 062
     Dates: start: 20160530, end: 20160530

REACTIONS (6)
  - Application site discolouration [Unknown]
  - Application site urticaria [Recovered/Resolved]
  - Application site paraesthesia [Recovered/Resolved]
  - Migraine [Not Recovered/Not Resolved]
  - Application site erythema [Recovered/Resolved]
  - Application site pruritus [Unknown]

NARRATIVE: CASE EVENT DATE: 20160530
